FAERS Safety Report 4521231-6 (Version None)
Quarter: 2004Q4

REPORT INFORMATION
  Report Type: 
  Country: None (occurrence: None)
  Receive Date: 20041208
  Receipt Date: 20041130
  Transmission Date: 20050328
  Serious: Yes (Disabling, Other)
  Sender: FDA-Public Use
  Company Number: US-JNJFOC-20040401261

PATIENT
  Sex: Female
  Weight: 72.58 kg

DRUGS (12)
  1. TOPAMAX [Suspect]
     Indication: NEUROPATHIC PAIN
     Route: 049
     Dates: start: 20040219
  2. TOPAMAX [Suspect]
     Route: 049
     Dates: start: 20040219
  3. TOPAMAX [Suspect]
     Indication: BACK PAIN
     Route: 049
     Dates: start: 20040219
  4. TENORMIN [Concomitant]
  5. LANOXIN [Concomitant]
  6. ASPIRIN [Concomitant]
  7. PREMPRO [Concomitant]
  8. PREMPRO [Concomitant]
  9. NORCO [Concomitant]
     Route: 049
     Dates: start: 19981001
  10. NORCO [Concomitant]
     Route: 049
     Dates: start: 19981001
  11. MS CONTIN [Concomitant]
     Route: 049
     Dates: start: 20021101
  12. LORAZEPAM [Concomitant]
     Route: 049
     Dates: start: 20000101

REACTIONS (10)
  - ACCOMMODATION DISORDER [None]
  - ANGLE CLOSURE GLAUCOMA [None]
  - ASTHENOPIA [None]
  - CONFUSIONAL STATE [None]
  - EYE PAIN [None]
  - HEADACHE [None]
  - MYDRIASIS [None]
  - NAUSEA [None]
  - VISUAL DISTURBANCE [None]
  - VOMITING [None]
